FAERS Safety Report 4500800-3 (Version None)
Quarter: 2004Q4

REPORT INFORMATION
  Report Type: 
  Country: None (occurrence: None)
  Receive Date: 20041115
  Receipt Date: 20041103
  Transmission Date: 20050328
  Serious: Yes (Death, Hospitalization)
  Sender: FDA-Public Use
  Company Number: BW-BRISTOL-MYERS SQUIBB COMPANY-12754222

PATIENT
  Sex: Female

DRUGS (3)
  1. STAVUDINE [Suspect]
     Route: 048
     Dates: start: 20041026
  2. LAMIVUDINE [Suspect]
     Route: 048
     Dates: start: 20041026
  3. NEVIRAPINE [Suspect]
     Route: 048
     Dates: start: 20041012

REACTIONS (5)
  - ANAEMIA [None]
  - ASTHENIA [None]
  - DEATH [None]
  - DIARRHOEA [None]
  - NEUROPATHY [None]
